FAERS Safety Report 24972241 (Version 1)
Quarter: 2025Q1

REPORT INFORMATION
  Report Type: Report from Study
  Country: AT (occurrence: AT)
  Receive Date: 20250214
  Receipt Date: 20250214
  Transmission Date: 20250409
  Serious: Yes (Hospitalization)
  Sender: ABBVIE
  Company Number: AT-ABBVIE-6134210

PATIENT
  Age: 54 Year
  Sex: Female

DRUGS (6)
  1. HUMIRA [Suspect]
     Active Substance: ADALIMUMAB
     Indication: Rheumatoid arthritis
     Route: 058
     Dates: start: 2012
  2. HUMIRA [Suspect]
     Active Substance: ADALIMUMAB
     Route: 058
     Dates: start: 2024
  3. HUMIRA [Suspect]
     Active Substance: ADALIMUMAB
     Dosage: PAUSED FOR 6 WEEKS IN 2024
     Route: 058
  4. CANDESARTAN CILEXETIL [Concomitant]
     Active Substance: CANDESARTAN CILEXETIL
     Indication: Hypertension
  5. VIROPEL [Concomitant]
     Indication: Herpes zoster
  6. CORTISONE [Concomitant]
     Active Substance: CORTISONE
     Indication: Herpes zoster

REACTIONS (7)
  - Hip arthroplasty [Recovered/Resolved]
  - Nasopharyngitis [Recovered/Resolved]
  - Herpes zoster [Recovering/Resolving]
  - Arthralgia [Not Recovered/Not Resolved]
  - Mobility decreased [Not Recovered/Not Resolved]
  - Arthralgia [Unknown]
  - Vomiting [Unknown]

NARRATIVE: CASE EVENT DATE: 20150101
